FAERS Safety Report 6939923-8 (Version None)
Quarter: 2010Q3

REPORT INFORMATION
  Report Type: 
  Country: None (occurrence: None)
  Receive Date: 20100825
  Receipt Date: 20100813
  Transmission Date: 20110219
  Serious: Yes (Other)
  Sender: FDA-Public Use
  Company Number: DE-PFIZER INC-2010070179

PATIENT
  Age: 51 Year
  Sex: Female

DRUGS (1)
  1. ZITHROMAX [Suspect]
     Indication: BRONCHITIS
     Dosage: 500 MG, 1X/DAY
     Route: 048
     Dates: start: 20100520, end: 20100522

REACTIONS (2)
  - AGEUSIA [None]
  - ANOSMIA [None]
